FAERS Safety Report 12309347 (Version 1)
Quarter: 2016Q2

REPORT INFORMATION
  Report Type: Spontaneous
  Country: DE (occurrence: DE)
  Receive Date: 20160427
  Receipt Date: 20160427
  Transmission Date: 20160815
  Serious: Yes (Hospitalization)
  Sender: FDA-Public Use
  Company Number: PHHY2016DE050993

PATIENT
  Sex: Female

DRUGS (7)
  1. REVOLADE [Suspect]
     Active Substance: ELTROMBOPAG
     Dosage: 50 MG, EVERY 3RD DAY
     Route: 065
     Dates: start: 20160107
  2. REVOLADE [Suspect]
     Active Substance: ELTROMBOPAG
     Dosage: 50 MG, EVERY 4 DAYS
     Route: 065
     Dates: start: 20160218
  3. REVOLADE [Suspect]
     Active Substance: ELTROMBOPAG
     Dosage: 25 MG, QOD (EVERY 2ND DAY)
     Route: 065
     Dates: end: 20151216
  4. REVOLADE [Suspect]
     Active Substance: ELTROMBOPAG
     Dosage: 25 MG, EVERY 3RD DAY
     Route: 065
     Dates: start: 20160229
  5. REVOLADE [Suspect]
     Active Substance: ELTROMBOPAG
     Dosage: 25 MG, EVERY 3RD DAY
     Route: 065
     Dates: start: 20160322, end: 20160330
  6. DANAZOL. [Concomitant]
     Active Substance: DANAZOL
     Indication: PRODUCT USED FOR UNKNOWN INDICATION
     Route: 065
  7. REVOLADE [Suspect]
     Active Substance: ELTROMBOPAG
     Indication: IMMUNE THROMBOCYTOPENIC PURPURA
     Dosage: 50 MG, UNK
     Route: 065
     Dates: start: 2015

REACTIONS (12)
  - Paraesthesia [Unknown]
  - Depression [Unknown]
  - Abdominal pain [Unknown]
  - Pyrexia [Unknown]
  - Liver function test increased [Unknown]
  - Cholelithiasis [Unknown]
  - Weight decreased [Unknown]
  - Bladder disorder [Unknown]
  - Injury [Unknown]
  - Skin disorder [Unknown]
  - Platelet count abnormal [Unknown]
  - Headache [Unknown]

NARRATIVE: CASE EVENT DATE: 2015
